FAERS Safety Report 25947902 (Version 2)
Quarter: 2025Q4

REPORT INFORMATION
  Report Type: Spontaneous
  Country: MO (occurrence: US)
  Receive Date: 20251022
  Receipt Date: 20251026
  Transmission Date: 20260117
  Serious: No
  Sender: AMGEN
  Company Number: MO-AMGEN-USASP2025208005

PATIENT
  Age: 42 Year
  Sex: Male

DRUGS (2)
  1. ENBREL [Suspect]
     Active Substance: ETANERCEPT
     Indication: Juvenile idiopathic arthritis
     Dosage: 50 MILLIGRAM, QWK
     Route: 058
  2. HUMIRA [Concomitant]
     Active Substance: ADALIMUMAB

REACTIONS (3)
  - Decreased immune responsiveness [Unknown]
  - Therapeutic product effect incomplete [Unknown]
  - Drug effect less than expected [Unknown]
